FAERS Safety Report 8319468-3 (Version None)
Quarter: 2012Q2

REPORT INFORMATION
  Report Type: 
  Country: None (occurrence: None)
  Receive Date: 20120427
  Receipt Date: 20120417
  Transmission Date: 20120825
  Serious: Yes (Death)
  Sender: FDA-Public Use
  Company Number: US-MYLANLABS-2010S1008772

PATIENT
  Age: 29 Year
  Sex: Male
  Weight: 102.51 kg

DRUGS (6)
  1. ATENOLOL [Concomitant]
  2. PROMETHAZINE [Concomitant]
     Dosage: 1 TAB EVERY 4-6 HOURS
  3. FENTANYL-100 [Suspect]
     Indication: PAIN
     Dosage: CHANGED Q3D
     Route: 062
     Dates: end: 20080604
  4. HYDROMORPHONE HCL [Concomitant]
     Dosage: 1 -2 TABS
  5. ALPRAZOLAM [Concomitant]
  6. CARISOPRODOL [Concomitant]

REACTIONS (1)
  - TOXICITY TO VARIOUS AGENTS [None]
